FAERS Safety Report 7046390-5 (Version None)
Quarter: 2010Q4

REPORT INFORMATION
  Report Type: 
  Country: None (occurrence: None)
  Receive Date: 20101014
  Receipt Date: 20101004
  Transmission Date: 20110411
  Serious: Yes (Hospitalization, Other)
  Sender: FDA-Public Use
  Company Number: US-ELI_LILLY_AND_COMPANY-US201005000623

PATIENT
  Sex: Male
  Weight: 108.84 kg

DRUGS (2)
  1. BYETTA [Suspect]
     Dates: start: 20050601, end: 20070301
  2. INSULIN [Concomitant]
     Indication: DIABETES MELLITUS

REACTIONS (3)
  - OFF LABEL USE [None]
  - PANCREATITIS [None]
  - RENAL FAILURE [None]
